FAERS Safety Report 5829092-X (Version None)
Quarter: 2008Q3

REPORT INFORMATION
  Report Type: 
  Country: None (occurrence: None)
  Receive Date: 20080731
  Receipt Date: 20080723
  Transmission Date: 20090109
  Serious: Yes (Other)
  Sender: FDA-Public Use
  Company Number: US-TYCO HEALTHCARE/MALLINCKRODT-T200701562

PATIENT

DRUGS (13)
  1. OPTIMARK [Suspect]
     Indication: NUCLEAR MAGNETIC RESONANCE IMAGING BRAIN
     Dosage: UNK, SINGLE
     Dates: start: 20010907, end: 20010907
  2. OMNISCAN [Suspect]
     Indication: NUCLEAR MAGNETIC RESONANCE IMAGING BRAIN
     Dosage: UNK, SINGLE
     Dates: start: 20010910, end: 20010910
  3. OMNISCAN [Suspect]
     Indication: FISTULOGRAM
     Dosage: UNK, SINGLE
     Dates: start: 20010918, end: 20010918
  4. OMNISCAN [Suspect]
     Indication: VENOGRAM
     Dosage: UNK, SINGLE
     Dates: start: 20010926, end: 20010926
  5. OMNISCAN [Suspect]
     Indication: ANGIOGRAM
     Dosage: UNK, SINGLE
     Dates: start: 20010927, end: 20010927
  6. OMNISCAN [Suspect]
     Dosage: UNK, SINGLE
     Dates: start: 20020227
  7. CONTRAST MEDIA [Suspect]
     Indication: COMPUTERISED TOMOGRAM
     Dosage: UNK, SINGLE
     Dates: start: 20010911, end: 20010911
  8. RENAGEL                            /01459901/ [Concomitant]
     Indication: MINERAL SUPPLEMENTATION
     Dosage: 1600 MG, QD
  9. SENSIPAR [Concomitant]
     Indication: MINERAL SUPPLEMENTATION
     Dosage: 120 MG, QD
  10. VICODIN [Concomitant]
     Indication: PAIN
     Dosage: UNK, PRN
  11. VITAMINS                           /90003601/ [Concomitant]
     Indication: VITAMIN SUPPLEMENTATION
     Dosage: 1 TAB, QD
  12. IRON [Concomitant]
     Indication: MINERAL SUPPLEMENTATION
  13. HEMOCRIT [Concomitant]
     Indication: PROPHYLAXIS
     Dosage: THREE TIMES WEEKLY

REACTIONS (1)
  - NEPHROGENIC SYSTEMIC FIBROSIS [None]
